FAERS Safety Report 8026672 (Version 4)
Quarter: 2012Q4

REPORT INFORMATION
  Report Type: 
  Country: IE (occurrence: IE)
  Receive Date: 20110708
  Receipt Date: 20121023
  Transmission Date: 20130627
  Serious: Yes (Life-Threatening, Other)
  Sender: FDA-Public Use
  Company Number: IE-GLAXOSMITHKLINE-B0728016A

PATIENT
  Age: 88 Year
  Sex: Female

DRUGS (9)
  1. AUGMENTIN [Suspect]
     Indication: PRODUCT USED FOR UNKNOWN INDICATION
     Route: 048
     Dates: start: 20110607
  2. LAMICTAL [Suspect]
     Indication: DEPRESSION
     Dosage: 25MG Per day
     Route: 048
     Dates: start: 20110524, end: 20110608
  3. VALDOXAN [Suspect]
     Indication: DEPRESSION
     Dosage: 25MG Per day
     Route: 048
     Dates: start: 20110214, end: 20110608
  4. KLACID [Suspect]
     Indication: PRODUCT USED FOR UNKNOWN INDICATION
     Route: 048
     Dates: start: 20110525, end: 20110603
  5. MACROBID [Suspect]
     Indication: PRODUCT USED FOR UNKNOWN INDICATION
     Route: 048
     Dates: start: 20110525, end: 20110603
  6. MIRTAZAPINE [Suspect]
     Indication: DEPRESSION
     Dosage: 30MCG per day
     Route: 065
     Dates: start: 20080929, end: 20110613
  7. PLAVIX [Concomitant]
     Dosage: 75MCG per day
  8. MADOPAR [Concomitant]
     Dosage: 187.5MCG per day
     Dates: start: 20100211
  9. MEMANTINE HYDROCHLORIDE [Concomitant]
     Indication: DEMENTIA
     Dosage: 20MCG per day
     Dates: start: 20100906

REACTIONS (3)
  - Jaundice [Recovered/Resolved]
  - Chromaturia [Unknown]
  - Body temperature increased [Unknown]
